FAERS Safety Report 4873846-3 (Version None)
Quarter: 2006Q1

REPORT INFORMATION
  Report Type: 
  Country: None (occurrence: None)
  Receive Date: 20060104
  Receipt Date: 20051220
  Transmission Date: 20060701
  Serious: Yes (Hospitalization, Other)
  Sender: FDA-Public Use
  Company Number: 2005-247

PATIENT
  Age: 70 Year
  Sex: Female

DRUGS (2)
  1. CARBOPLATIN [Suspect]
     Indication: OVARIAN CANCER
  2. DOCETAXEL [Suspect]
     Indication: OVARIAN CANCER

REACTIONS (10)
  - ANAEMIA [None]
  - BLOOD LACTATE DEHYDROGENASE INCREASED [None]
  - BOWEN'S DISEASE [None]
  - DISEASE PROGRESSION [None]
  - GENE MUTATION [None]
  - MYELODYSPLASTIC SYNDROME [None]
  - MYELOFIBROSIS [None]
  - PALPITATIONS [None]
  - PANCYTOPENIA [None]
  - POST PROCEDURAL COMPLICATION [None]
